FAERS Safety Report 6046723-2 (Version None)
Quarter: 2009Q1

REPORT INFORMATION
  Report Type: 
  Country: None (occurrence: None)
  Receive Date: 20090122
  Receipt Date: 20090115
  Transmission Date: 20090719
  Serious: Yes (Other)
  Sender: FDA-Public Use
  Company Number: BR-AVENTIS-200910229EU

PATIENT
  Age: 32 Year
  Sex: Female
  Weight: 73 kg

DRUGS (2)
  1. ENOXAPARIN SODIUM [Suspect]
     Indication: PROTEIN S DEFICIENCY
     Route: 058
     Dates: start: 20090114, end: 20090114
  2. FOLIC ACID [Concomitant]
     Dosage: DOSE: 1 TAB
     Route: 048
     Dates: start: 20080101

REACTIONS (3)
  - ABORTION SPONTANEOUS [None]
  - DRUG EXPOSURE DURING PREGNANCY [None]
  - HAEMORRHAGE [None]
